FAERS Safety Report 7820837-6 (Version None)
Quarter: 2011Q4

REPORT INFORMATION
  Report Type: 
  Country: None (occurrence: None)
  Receive Date: 20111018
  Receipt Date: 20111013
  Transmission Date: 20120403
  Serious: Yes (Life-Threatening, Hospitalization)
  Sender: FDA-Public Use
  Company Number: IT-ELI_LILLY_AND_COMPANY-IT201110002914

PATIENT

DRUGS (1)
  1. ALIMTA [Suspect]
     Indication: LUNG ADENOCARCINOMA
     Dosage: 929 MG, UNKNOWN
     Route: 042
     Dates: start: 20110902, end: 20110902

REACTIONS (8)
  - ABDOMINAL DISCOMFORT [None]
  - BLOOD GLUCOSE INCREASED [None]
  - CONFUSIONAL STATE [None]
  - PYREXIA [None]
  - DIARRHOEA [None]
  - EATING DISORDER [None]
  - OXYGEN SATURATION DECREASED [None]
  - DERMO-HYPODERMITIS [None]
